APPROVED DRUG PRODUCT: IBUPROFEN
Active Ingredient: IBUPROFEN
Strength: 40MG/ML
Dosage Form/Route: SUSPENSION/DROPS;ORAL
Application: A210755 | Product #001
Applicant: GUARDIAN DRUG CO
Approved: Sep 26, 2018 | RLD: No | RS: No | Type: OTC